FAERS Safety Report 18469529 (Version 1)
Quarter: 2020Q4

REPORT INFORMATION
  Report Type: Spontaneous
  Country: GB (occurrence: GB)
  Receive Date: 20201105
  Receipt Date: 20201105
  Transmission Date: 20210114
  Serious: Yes (Hospitalization)
  Sender: FDA-Public Use
  Company Number: GB-MYLANLABS-2020M1092534

PATIENT
  Age: 78 Year
  Sex: Male

DRUGS (3)
  1. TIOTROPIUM [Concomitant]
     Active Substance: TIOTROPIUM
     Dosage: 18 MICROGRAM, QD
     Dates: start: 20200103
  2. CIPROFLOXACIN. [Suspect]
     Active Substance: CIPROFLOXACIN
     Indication: CHRONIC OBSTRUCTIVE PULMONARY DISEASE
     Dosage: 1000 MILLIGRAM, QD
     Route: 048
     Dates: start: 20200103, end: 20200106
  3. SALBUTAMOL [Concomitant]
     Active Substance: ALBUTEROL
     Indication: CHRONIC OBSTRUCTIVE PULMONARY DISEASE
     Dosage: 2 DOSAGE FORM, PRN LONG TERM. INAHLER

REACTIONS (2)
  - Tendon rupture [Recovering/Resolving]
  - Contraindicated product prescribed [Unknown]

NARRATIVE: CASE EVENT DATE: 20200103
